FAERS Safety Report 5057736-1 (Version None)
Quarter: 2006Q3

REPORT INFORMATION
  Report Type: 
  Country: None (occurrence: None)
  Receive Date: 20060721
  Receipt Date: 20060131
  Transmission Date: 20061208
  Serious: No
  Sender: FDA-Public Use
  Company Number: US-GLAXOSMITHKLINE-A0591735A

PATIENT
  Age: 65 Year
  Sex: Male

DRUGS (4)
  1. AVANDIA [Suspect]
     Dosage: 4MG PER DAY
     Route: 048
     Dates: start: 20050101
  2. METFORMIN [Suspect]
     Route: 065
  3. GLIPIZIDE [Concomitant]
  4. VERAPAMIL [Concomitant]

REACTIONS (2)
  - MALAISE [None]
  - NAUSEA [None]
